FAERS Safety Report 5609093-7 (Version None)
Quarter: 2008Q1

REPORT INFORMATION
  Report Type: 
  Country: None (occurrence: None)
  Receive Date: 20080131
  Receipt Date: 20080129
  Transmission Date: 20080703
  Serious: Yes (Hospitalization, Other)
  Sender: FDA-Public Use
  Company Number: PT-BRISTOL-MYERS SQUIBB COMPANY-13834627

PATIENT
  Age: 60 Year
  Sex: Male

DRUGS (4)
  1. REYATAZ [Suspect]
     Indication: HIV INFECTION
     Dates: start: 20041101, end: 20070701
  2. RITONAVIR [Concomitant]
     Indication: HIV INFECTION
     Dates: start: 20041101
  3. TRUVADA [Concomitant]
     Route: 048
     Dates: start: 20041101, end: 20070301
  4. KIVEXA [Concomitant]
     Route: 048
     Dates: start: 20070301

REACTIONS (3)
  - NEPHROLITHIASIS [None]
  - RENAL COLIC [None]
  - URETERIC OBSTRUCTION [None]
